FAERS Safety Report 13330264 (Version 2)
Quarter: 2017Q1

REPORT INFORMATION
  Report Type: Spontaneous
  Country: ES (occurrence: ES)
  Receive Date: 20170314
  Receipt Date: 20170322
  Transmission Date: 20170428
  Serious: Yes (Hospitalization, Other)
  Sender: FDA-Public Use
  Company Number: ES-ALEMBIC PHARMACUETICALS LIMITED-2017SCAL000223

PATIENT

DRUGS (1)
  1. LITHIUM CARBONATE. [Suspect]
     Active Substance: LITHIUM CARBONATE
     Indication: PRODUCT USED FOR UNKNOWN INDICATION
     Dosage: UNK

REACTIONS (12)
  - Acute kidney injury [Unknown]
  - Psychomotor hyperactivity [Unknown]
  - Intentional overdose [Unknown]
  - Suicide attempt [Unknown]
  - Balance disorder [Unknown]
  - Bradyphrenia [Unknown]
  - Toxicity to various agents [Unknown]
  - Depressed level of consciousness [Unknown]
  - Electrocardiogram abnormal [Recovering/Resolving]
  - Tremor [Unknown]
  - Somnolence [Unknown]
  - Dizziness [Unknown]
